FAERS Safety Report 20183329 (Version 1)
Quarter: 2021Q4

REPORT INFORMATION
  Report Type: Spontaneous
  Country: US (occurrence: None)
  Receive Date: 20211214
  Receipt Date: 20211214
  Transmission Date: 20220304
  Serious: Yes (Other)
  Sender: FDA-Public Use
  Company Number: None

PATIENT
  Age: 61 Year
  Sex: Male

DRUGS (2)
  1. BUPRENORPHINE AND NALOXONE SUBLINGUAL [Suspect]
     Active Substance: BUPRENORPHINE HYDROCHLORIDE\NALOXONE HYDROCHLORIDE
     Indication: Drug dependence
     Dosage: FREQUENCY : TWICE A DAY;?
     Route: 060
  2. UNSPECIFIED INGREDIENT [Concomitant]
     Active Substance: UNSPECIFIED INGREDIENT

REACTIONS (3)
  - Drug withdrawal syndrome [None]
  - Therapeutic product effect decreased [None]
  - Product substitution issue [None]

NARRATIVE: CASE EVENT DATE: 20210625
